FAERS Safety Report 7632581-9 (Version None)
Quarter: 2011Q3

REPORT INFORMATION
  Report Type: 
  Country: None (occurrence: None)
  Receive Date: 20110725
  Receipt Date: 20101020
  Transmission Date: 20111222
  Serious: No
  Sender: FDA-Public Use
  Company Number: US-BRISTOL-MYERS SQUIBB COMPANY-15343320

PATIENT
  Age: 79 Year
  Sex: Female
  Weight: 91 kg

DRUGS (4)
  1. COUMADIN [Suspect]
     Indication: THROMBOSIS
     Dosage: ALSO TAKEN IN 2006 FOR 6 MONTHS
     Dates: start: 20100301
  2. ACETAMINOPHEN [Concomitant]
  3. ATENOLOL [Concomitant]
  4. VICODIN [Concomitant]
     Dosage: 1 DF=5/500MG

REACTIONS (1)
  - INTERNATIONAL NORMALISED RATIO FLUCTUATION [None]
